FAERS Safety Report 9783121 (Version 4)
Quarter: 2014Q1

REPORT INFORMATION
  Report Type: Report from Study
  Country: JP (occurrence: JP)
  Receive Date: 20131226
  Receipt Date: 20140311
  Transmission Date: 20141002
  Serious: Yes (Death)
  Sender: FDA-Public Use
  Company Number: JP-OTSUKA-JP-2013-16088

PATIENT
  Sex: Female

DRUGS (11)
  1. SAMSCA [Suspect]
     Indication: FLUID RETENTION
     Dosage: 7.5 MG MILLIGRAM(S), QAM
     Route: 048
     Dates: start: 20131119, end: 20131124
  2. HEPARIN [Concomitant]
     Indication: PROPHYLAXIS
     Dosage: 10 KIU IU(1000S), DAILY DOSE
     Route: 042
     Dates: end: 20131112
  3. LASIX [Concomitant]
     Dosage: 10 MG MILLIGRAM(S), DAILY DOSE
     Route: 042
     Dates: end: 20131113
  4. FAMOTIDINE [Concomitant]
     Indication: PROPHYLAXIS
     Dosage: 20 MG MILLIGRAM(S), DAILY DOSE
     Route: 042
     Dates: end: 20131122
  5. NEOLAMIN 3B [Concomitant]
     Indication: VITAMIN SUPPLEMENTATION
     Dosage: 10 ML MILLILITRE(S), DAILY DOSE
     Route: 042
     Dates: end: 20131122
  6. LIASOPHIN [Concomitant]
     Indication: PROPHYLAXIS
     Dosage: 1 G GRAM(S), DAILY DOSE
     Route: 042
     Dates: end: 20131122
  7. HANP [Concomitant]
     Indication: CARDIAC FAILURE
     Dosage: 2000 MCG, DAILY DOSE
     Route: 042
     Dates: end: 20131123
  8. NU-LOTAN [Concomitant]
     Dosage: 25 MG MILLIGRAM(S), DAILY DOSE
     Route: 048
     Dates: end: 20131124
  9. ARTIST [Concomitant]
     Indication: CARDIAC FAILURE
     Dosage: 2.5 MG MILLIGRAM(S), DAILY DOSE
     Route: 048
     Dates: end: 20131124
  10. DIART [Concomitant]
     Dosage: 30 MG MILLIGRAM(S), DAILY DOSE
     Route: 048
     Dates: end: 20131124
  11. ANISTADIN [Concomitant]
     Dosage: 1 MG MILLIGRAM(S), DAILY DOSE
     Route: 048
     Dates: end: 20131124

REACTIONS (1)
  - Cardiac failure congestive [Fatal]
